FAERS Safety Report 17964630 (Version 1)
Quarter: 2020Q2

REPORT INFORMATION
  Report Type: Spontaneous
  Country: BE (occurrence: BE)
  Receive Date: 20200630
  Receipt Date: 20200630
  Transmission Date: 20200714
  Serious: Yes (Other)
  Sender: FDA-Public Use
  Company Number: BE-BAYER-2020-126737

PATIENT
  Age: 81 Year
  Sex: Male

DRUGS (2)
  1. NEXAVAR [Suspect]
     Active Substance: SORAFENIB
     Dosage: 800 MG, QD
     Dates: start: 201606
  2. NEXAVAR [Suspect]
     Active Substance: SORAFENIB
     Dosage: 600 MG, QD

REACTIONS (5)
  - Diarrhoea [None]
  - Pulmonary embolism [None]
  - Hepatic mass [None]
  - Asthenia [None]
  - Dysphonia [None]
